FAERS Safety Report 7263861-7 (Version None)
Quarter: 2011Q1

REPORT INFORMATION
  Report Type: 
  Country: None (occurrence: None)
  Receive Date: 20110130
  Receipt Date: 20101206
  Transmission Date: 20110831
  Serious: No
  Sender: FDA-Public Use
  Company Number: US-ABBOTT-10P-163-0689951-00

PATIENT
  Age: 24 Year
  Sex: Female

DRUGS (7)
  1. ALLEGRA [Concomitant]
     Indication: HYPERSENSITIVITY
  2. ZOLOFT [Concomitant]
     Indication: DEPRESSION
     Dosage: DAILY
  3. PREDNISONE [Concomitant]
     Indication: PRODUCT USED FOR UNKNOWN INDICATION
     Dosage: DAILY
  4. BIRTH CONTROL PILLS [Concomitant]
     Indication: CONTRACEPTION
     Dosage: DAILY
  5. ALBUTEROL [Concomitant]
     Indication: PRODUCT USED FOR UNKNOWN INDICATION
     Dosage: PRN
  6. LIALDA [Concomitant]
     Indication: COLITIS ULCERATIVE
  7. HUMIRA [Suspect]
     Indication: COLITIS ULCERATIVE
     Dosage: LOADING DOSE
     Dates: start: 20101124

REACTIONS (1)
  - INJECTION SITE PAIN [None]
